FAERS Safety Report 8780271 (Version 1)
Quarter: 2012Q4

REPORT INFORMATION
  Report Type: Spontaneous
  Country: GB (occurrence: None)
  Receive Date: 20120829
  Receipt Date: 20120829
  Transmission Date: 20130627
  Serious: Yes (Disabling)
  Sender: FDA-Public Use
  Company Number: GER/UKI/12/0025612

PATIENT
  Age: 33 Year
  Sex: Female
  Weight: 60.32 kg

DRUGS (1)
  1. SERTRALINE (SERTRALINE) (SERTRALINE) [Suspect]
     Indication: DEPRESSED MOOD
     Route: 048
     Dates: start: 20111001, end: 20120301

REACTIONS (9)
  - Arthralgia [None]
  - Chest pain [None]
  - Eye pain [None]
  - Migraine [None]
  - Myalgia [None]
  - Hypoaesthesia [None]
  - Panic attack [None]
  - Paraesthesia [None]
  - Withdrawal syndrome [None]
